FAERS Safety Report 14071084 (Version 2)
Quarter: 2019Q1

REPORT INFORMATION
  Report Type: Spontaneous
  Country: US (occurrence: US)
  Receive Date: 20171011
  Receipt Date: 20190125
  Transmission Date: 20190417
  Serious: Yes (Life-Threatening, Hospitalization, Other)
  Sender: FDA-Public Use
  Company Number: US-ACCORD-059742

PATIENT
  Age: 57 Year
  Sex: Female

DRUGS (3)
  1. CAPECITABINE. [Suspect]
     Active Substance: CAPECITABINE
     Indication: INVASIVE DUCTAL BREAST CARCINOMA
     Dates: start: 2016
  2. DOCETAXEL. [Suspect]
     Active Substance: DOCETAXEL
     Indication: INVASIVE DUCTAL BREAST CARCINOMA
     Dosage: FOR FIVE CYCLES
     Dates: start: 2016
  3. CYCLOPHOSPHAMIDE/CYCLOPHOSPHAMIDE MONOHYDRATE [Concomitant]
     Indication: INVASIVE DUCTAL BREAST CARCINOMA
     Dosage: FOR FIVE CYCLES
     Dates: start: 2016

REACTIONS (3)
  - Hypersensitivity [Unknown]
  - Pancytopenia [Recovered/Resolved]
  - Dihydropyrimidine dehydrogenase deficiency [Recovering/Resolving]

NARRATIVE: CASE EVENT DATE: 2016
